FAERS Safety Report 17244314 (Version 3)
Quarter: 2021Q1

REPORT INFORMATION
  Report Type: Spontaneous
  Country: US (occurrence: US)
  Receive Date: 20200107
  Receipt Date: 20210112
  Transmission Date: 20210419
  Serious: Yes (Other)
  Sender: FDA-Public Use
  Company Number: US-GILEAD-2019-0444838

PATIENT
  Age: 52 Year
  Sex: Male
  Weight: 68.03 kg

DRUGS (20)
  1. TRUVADA [Suspect]
     Active Substance: EMTRICITABINE\TENOFOVIR DISOPROXIL FUMARATE
     Indication: HIV INFECTION
     Dosage: UNK
     Route: 048
     Dates: start: 201208, end: 201507
  2. VIREAD [Suspect]
     Active Substance: TENOFOVIR DISOPROXIL FUMARATE
     Dosage: UNK
     Route: 065
     Dates: start: 201301, end: 201301
  3. INTELENCE [Concomitant]
     Active Substance: ETRAVIRINE
  4. VIRAMUNE [Concomitant]
     Active Substance: NEVIRAPINE
  5. ALLEGRA [Concomitant]
     Active Substance: FEXOFENADINE HYDROCHLORIDE
     Dosage: UNK
     Dates: start: 2013
  6. ISENTRESS [Concomitant]
     Active Substance: RALTEGRAVIR POTASSIUM
  7. VIDEX [Concomitant]
     Active Substance: DIDANOSINE
  8. VIREAD [Suspect]
     Active Substance: TENOFOVIR DISOPROXIL FUMARATE
     Indication: HIV INFECTION
     Dosage: UNK
     Route: 048
     Dates: start: 2007, end: 201208
  9. FLOMAX [Concomitant]
     Active Substance: TAMSULOSIN HYDROCHLORIDE
     Dosage: UNK
     Dates: start: 2018
  10. LISINOPRIL. [Concomitant]
     Active Substance: LISINOPRIL
     Dosage: UNK
     Dates: start: 2013
  11. TIVICAY [Concomitant]
     Active Substance: DOLUTEGRAVIR SODIUM
     Dosage: UNK
     Dates: start: 2013
  12. ZOFRAN [Concomitant]
     Active Substance: ONDANSETRON HYDROCHLORIDE
     Dosage: UNK
     Dates: start: 2013
  13. FLONASE [Concomitant]
     Active Substance: FLUTICASONE PROPIONATE
     Dosage: UNK
     Dates: start: 2013
  14. NIFEDIPINE. [Concomitant]
     Active Substance: NIFEDIPINE
     Dosage: UNK
     Dates: start: 2013
  15. RESTORIL [Concomitant]
     Active Substance: TEMAZEPAM
     Dosage: UNK
     Dates: start: 2014
  16. DESCOVY [Concomitant]
     Active Substance: EMTRICITABINE\TENOFOVIR ALAFENAMIDE FUMARATE
     Dosage: UNK
     Dates: start: 2016
  17. SUMATRIPTAN. [Concomitant]
     Active Substance: SUMATRIPTAN
  18. COMBIVIR [Concomitant]
     Active Substance: LAMIVUDINE\ZIDOVUDINE
  19. ZIAGEN [Concomitant]
     Active Substance: ABACAVIR SULFATE
  20. JUBLIA [Concomitant]
     Active Substance: EFINACONAZOLE
     Dosage: UNK
     Dates: start: 201912

REACTIONS (14)
  - Pneumonia [Not Recovered/Not Resolved]
  - Osteoporosis [Not Recovered/Not Resolved]
  - Economic problem [Not Recovered/Not Resolved]
  - Anhedonia [Not Recovered/Not Resolved]
  - Pain [Not Recovered/Not Resolved]
  - Bone marrow disorder [Not Recovered/Not Resolved]
  - Depression [Not Recovered/Not Resolved]
  - Emotional distress [Not Recovered/Not Resolved]
  - Anxiety [Not Recovered/Not Resolved]
  - Immunoglobulins decreased [Not Recovered/Not Resolved]
  - Bronchitis [Unknown]
  - Depressed mood [Not Recovered/Not Resolved]
  - Anger [Not Recovered/Not Resolved]
  - Osteoarthritis [Not Recovered/Not Resolved]

NARRATIVE: CASE EVENT DATE: 2011
